FAERS Safety Report 23936373 (Version 1)
Quarter: 2024Q2

REPORT INFORMATION
  Report Type: Spontaneous
  Country: US (occurrence: US)
  Receive Date: 20240604
  Receipt Date: 20240604
  Transmission Date: 20240716
  Serious: Yes (Other)
  Sender: FDA-Public Use
  Company Number: US-UCBSA-2024026828

PATIENT
  Sex: Female

DRUGS (9)
  1. CERTOLIZUMAB PEGOL [Suspect]
     Active Substance: CERTOLIZUMAB PEGOL
     Indication: Antiphospholipid syndrome
     Dosage: 400 MILLIGRAM INITIALLY AT 8 WEEKS AND 6 DAYS GESTATION
  2. CERTOLIZUMAB PEGOL [Suspect]
     Active Substance: CERTOLIZUMAB PEGOL
     Indication: Off label use
     Dosage: 400 MILLIGRAM, EV 2 WEEKS(QOW)
  3. CERTOLIZUMAB PEGOL [Suspect]
     Active Substance: CERTOLIZUMAB PEGOL
     Dosage: 400 MILLIGRAM, EV 4 WEEKS
  4. CERTOLIZUMAB PEGOL [Suspect]
     Active Substance: CERTOLIZUMAB PEGOL
     Dosage: 200 MILLIGRAM, EV 2 WEEKS(QOW) UNTIL 27 WEEKS AND 6 DAYS GESTATION
  5. NIFEDIPINE [Concomitant]
     Active Substance: NIFEDIPINE
     Indication: Hypertension
     Dosage: 60 MILLIGRAM, 2X/DAY (BID)
  6. ENOXAPARIN [Concomitant]
     Active Substance: ENOXAPARIN
     Indication: Antiphospholipid syndrome
     Dosage: UNK
  7. ASPIRIN [Concomitant]
     Active Substance: ASPIRIN
     Indication: Antiphospholipid syndrome
     Dosage: UNK
  8. BETAMETHASONE [Concomitant]
     Active Substance: BETAMETHASONE\BETAMETHASONE DIPROPIONATE
     Indication: Maternal therapy to enhance foetal lung maturity
     Dosage: UNK
  9. MAGNESIUM SULFATE [Concomitant]
     Active Substance: MAGNESIUM SULFATE\MAGNESIUM SULFATE HEPTAHYDRATE
     Indication: Seizure prophylaxis
     Dosage: UNK

REACTIONS (5)
  - Caesarean section [Unknown]
  - Premature delivery [Unknown]
  - Superimposed pre-eclampsia [Unknown]
  - Maternal exposure during pregnancy [Unknown]
  - Off label use [Unknown]
